FAERS Safety Report 14958652 (Version 3)
Quarter: 2018Q2

REPORT INFORMATION
  Report Type: Spontaneous
  Country: CN (occurrence: CN)
  Receive Date: 20180531
  Receipt Date: 20180531
  Transmission Date: 20180711
  Serious: Yes (Hospitalization, Other)
  Sender: FDA-Public Use
  Company Number: CN-BAYER-2018-101630

PATIENT
  Age: 15 Year
  Sex: Female

DRUGS (4)
  1. YAZ [Suspect]
     Active Substance: DROSPIRENONE\ETHINYL ESTRADIOL
     Indication: MENSTRUAL CYCLE MANAGEMENT
     Dosage: 3 DF, QD
     Route: 048
     Dates: start: 20171006, end: 20171009
  2. YAZ [Suspect]
     Active Substance: DROSPIRENONE\ETHINYL ESTRADIOL
     Indication: MENSTRUAL CYCLE MANAGEMENT
     Dosage: 1 DF, QD
     Route: 048
     Dates: start: 20171013
  3. YAZ [Suspect]
     Active Substance: DROSPIRENONE\ETHINYL ESTRADIOL
     Indication: DYSFUNCTIONAL UTERINE BLEEDING
     Dosage: 2 DF, QD
     Route: 048
     Dates: start: 20171010, end: 20171012
  4. TRANEXAMIC ACID. [Concomitant]
     Active Substance: TRANEXAMIC ACID
     Dosage: 1.0 G, QD
     Route: 041
     Dates: start: 20171004, end: 20171006

REACTIONS (6)
  - Brain oedema [None]
  - Off label use [None]
  - Product use in unapproved indication [None]
  - Intracranial venous sinus thrombosis [None]
  - Syncope [None]
  - Cerebral haemorrhage [None]

NARRATIVE: CASE EVENT DATE: 2017
